FAERS Safety Report 22048804 (Version 2)
Quarter: 2023Q2

REPORT INFORMATION
  Report Type: Report from Study
  Country: US (occurrence: US)
  Receive Date: 20230301
  Receipt Date: 20230612
  Transmission Date: 20230722
  Serious: Yes (Hospitalization)
  Sender: FDA-Public Use
  Company Number: US-HORIZON THERAPEUTICS-HZN-2023-001173

PATIENT

DRUGS (5)
  1. RAVICTI [Suspect]
     Active Substance: GLYCEROL PHENYLBUTYRATE
     Indication: Ornithine transcarbamoylase deficiency
     Dosage: 0.6 ML EVERY 8 HOURS BY G-TUBE WITH FOOD. TOTAL DAILY DOSE IS 1.8 ML (ORAL LIQUID 1.1 GRAMS/ML), PAC
  2. RAVICTI [Suspect]
     Active Substance: GLYCEROL PHENYLBUTYRATE
     Dosage: DOSE OF 0.6 ML EVERY 8 HOURS BY G-TUBE WITH FOOD AT A TOTAL DAILY DOSE OF 1.8 ML
  3. RAVICTI [Suspect]
     Active Substance: GLYCEROL PHENYLBUTYRATE
     Dosage: INCREASED AT A DOSE TO 1 ML THREE TIMES DAILY
     Route: 065
     Dates: start: 202302
  4. OMEPRAZOLE [Concomitant]
     Active Substance: OMEPRAZOLE
     Route: 065
  5. CITRULLINE 1000 [Concomitant]
     Dosage: 1 G/4 G POWDER PACK
     Route: 065

REACTIONS (6)
  - Drug level decreased [Unknown]
  - Hyperammonaemia [Unknown]
  - Gastrointestinal hypomotility [Unknown]
  - Lethargy [Unknown]
  - Decreased appetite [Unknown]
  - Vomiting [Unknown]

NARRATIVE: CASE EVENT DATE: 20230201
